FAERS Safety Report 5660341-7 (Version None)
Quarter: 2008Q1

REPORT INFORMATION
  Report Type: 
  Country: None (occurrence: None)
  Receive Date: 20080311
  Receipt Date: 20080227
  Transmission Date: 20080703
  Serious: Yes (Death, Life-Threatening, Hospitalization)
  Sender: FDA-Public Use
  Company Number: JP-AMGEN-US252501

PATIENT
  Sex: Female
  Weight: 68 kg

DRUGS (15)
  1. ENBREL [Suspect]
     Indication: RHEUMATOID ARTHRITIS
     Route: 058
     Dates: start: 20060905, end: 20071026
  2. MEDROL [Concomitant]
     Indication: RHEUMATOID ARTHRITIS
     Route: 048
     Dates: start: 20060905
  3. NEOISCOTIN [Concomitant]
     Dosage: UNSPECIFIED
     Route: 065
  4. AMLODIN [Concomitant]
     Route: 048
     Dates: start: 20060905
  5. LANSOPRAZOLE [Concomitant]
     Route: 048
     Dates: start: 20060905
  6. VOLTAREN [Concomitant]
     Indication: RHEUMATOID ARTHRITIS
     Dosage: UNSPECIFIED
     Route: 065
  7. PYRIDOXAL PHOSPHATE [Concomitant]
     Dosage: UNSPECIFIED
     Route: 065
  8. ZOLPIDEM TARTRATE [Concomitant]
     Route: 048
     Dates: start: 20060905
  9. HOKUNALIN [Concomitant]
     Dosage: UNSPECIFIED DOSE TAP
     Route: 065
  10. CODEINE PHOSPHATE [Concomitant]
     Dosage: UNSPECIFIED
     Route: 065
  11. ALENDRONATE SODIUM [Concomitant]
     Route: 065
     Dates: start: 20060905
  12. CELECOXIB [Concomitant]
     Route: 048
     Dates: start: 20070626
  13. EPADEL [Concomitant]
     Route: 048
     Dates: start: 20061205
  14. LIPITOR [Concomitant]
     Route: 048
     Dates: start: 20070109
  15. SULFASALAZINE [Concomitant]
     Indication: RHEUMATOID ARTHRITIS
     Route: 048
     Dates: start: 20060627, end: 20061128

REACTIONS (3)
  - CONDITION AGGRAVATED [None]
  - INTERSTITIAL LUNG DISEASE [None]
  - PANCREATITIS ACUTE [None]
